FAERS Safety Report 4636408-9 (Version None)
Quarter: 2005Q2

REPORT INFORMATION
  Report Type: 
  Country: None (occurrence: None)
  Receive Date: 20050415
  Receipt Date: 20050304
  Transmission Date: 20051028
  Serious: Yes (Other)
  Sender: FDA-Public Use
  Company Number: JP-ROCHE-398258

PATIENT
  Age: 35 Year
  Sex: Female

DRUGS (4)
  1. TAMIFLU [Suspect]
     Indication: INFLUENZA
     Route: 048
     Dates: start: 20050227, end: 20050302
  2. ACETAMINOPHEN [Suspect]
     Dosage: TRADE NAME: COCARL
     Route: 048
     Dates: start: 20050227, end: 20050302
  3. FLOMOX [Concomitant]
     Indication: DRUG USE FOR UNKNOWN INDICATION
     Route: 065
     Dates: start: 20050227, end: 20050308
  4. NOLVADEX [Concomitant]
     Route: 048
     Dates: start: 20011225, end: 20050325

REACTIONS (3)
  - DRUG INTERACTION [None]
  - NEUTROPENIA [None]
  - PHARYNGOLARYNGEAL PAIN [None]
